FAERS Safety Report 9220316 (Version 2)
Quarter: 2013Q2

REPORT INFORMATION
  Report Type: Spontaneous
  Country: IT (occurrence: IT)
  Receive Date: 20130409
  Receipt Date: 20130506
  Transmission Date: 20140414
  Serious: Yes (Hospitalization)
  Sender: FDA-Public Use
  Company Number: IT-ROCHE-1211248

PATIENT
  Age: 54 Year
  Sex: Male

DRUGS (4)
  1. RIVOTRIL [Suspect]
     Indication: INTENTIONAL SELF-INJURY
     Route: 048
     Dates: start: 20130330, end: 20130330
  2. MIRTAZAPINE [Suspect]
     Indication: INTENTIONAL SELF-INJURY
     Route: 048
     Dates: start: 20130330, end: 20130330
  3. MODITEN [Concomitant]
     Indication: PERSONALITY DISORDER
     Route: 065
  4. MICARDIS [Concomitant]
     Indication: PERSONALITY DISORDER

REACTIONS (3)
  - Intentional self-injury [Recovered/Resolved]
  - Sopor [Recovered/Resolved]
  - Drug abuse [Unknown]
